FAERS Safety Report 4534054-9 (Version None)
Quarter: 2004Q4

REPORT INFORMATION
  Report Type: 
  Country: None (occurrence: None)
  Receive Date: 20041221
  Receipt Date: 20041221
  Transmission Date: 20050328
  Serious: Yes (Hospitalization)
  Sender: FDA-Public Use
  Company Number: None

PATIENT
  Sex: Female
  Weight: 62.1428 kg

DRUGS (6)
  1. CARBAMAZEPINE [Suspect]
     Indication: CONVULSION
     Dosage: 2 AM    3 PM    ORAL
     Route: 048
     Dates: start: 19980601, end: 20041123
  2. THORAZINE [Suspect]
     Dosage: ORAL
     Route: 048
     Dates: start: 20041111, end: 20041123
  3. PROZAC [Concomitant]
  4. AMBIEN [Concomitant]
  5. ATIVAN [Concomitant]
  6. SYNTHROID [Concomitant]

REACTIONS (4)
  - ABDOMINAL PAIN [None]
  - DRUG INTERACTION [None]
  - PNEUMONIA [None]
  - STEVENS-JOHNSON SYNDROME [None]
